FAERS Safety Report 25174751 (Version 1)
Quarter: 2025Q2

REPORT INFORMATION
  Report Type: Other
  Country: CN (occurrence: None)
  Receive Date: 20250408
  Receipt Date: 20250408
  Transmission Date: 20250716
  Serious: Yes (Hospitalization, Other)
  Sender: INCYTE
  Company Number: CN-002147023-NVSC2025CN054680

PATIENT
  Age: 61 Year

DRUGS (5)
  1. RUXOLITINIB [Suspect]
     Active Substance: RUXOLITINIB
     Indication: Neoplasm
     Dosage: 10.000 MG, BID
  2. RUXOLITINIB [Suspect]
     Active Substance: RUXOLITINIB
     Indication: Chemotherapy
  3. AZACITIDINE [Suspect]
     Active Substance: AZACITIDINE
     Indication: Neoplasm
     Dosage: 100.000 MG, QD
  4. AZACITIDINE [Suspect]
     Active Substance: AZACITIDINE
     Indication: Chemotherapy
  5. HUMAN ERYTHROPOIETIN [Concomitant]
     Indication: Prophylaxis

REACTIONS (2)
  - Platelet count decreased [Unknown]
  - White blood cell count decreased [Recovering/Resolving]
